FAERS Safety Report 8101274-6 (Version None)
Quarter: 2012Q1

REPORT INFORMATION
  Report Type: 
  Country: None (occurrence: None)
  Receive Date: 20120129
  Receipt Date: 20110920
  Transmission Date: 20120608
  Serious: Yes (Other)
  Sender: FDA-Public Use
  Company Number: US-ABBOTT-11P-163-0856292-00

PATIENT
  Sex: Female
  Weight: 68.1 kg

DRUGS (8)
  1. FISH OIL [Concomitant]
     Indication: BLOOD CHOLESTEROL INCREASED
  2. VITAMIN D [Concomitant]
     Indication: VITAMIN SUPPLEMENTATION
  3. NIACIN [Concomitant]
     Indication: BLOOD CHOLESTEROL INCREASED
  4. ARAVA [Concomitant]
     Indication: RHEUMATOID ARTHRITIS
  5. CALCIUM [Concomitant]
     Indication: MINERAL SUPPLEMENTATION
  6. HUMIRA [Suspect]
     Indication: RHEUMATOID ARTHRITIS
     Route: 058
     Dates: start: 20101201, end: 20110125
  7. IBUPROFEN [Concomitant]
     Indication: ARTHRALGIA
  8. PREDNISONE TAB [Concomitant]
     Indication: RHEUMATOID ARTHRITIS

REACTIONS (1)
  - MALIGNANT MELANOMA [None]
